FAERS Safety Report 4539391-X (Version None)
Quarter: 2004Q4

REPORT INFORMATION
  Report Type: 
  Country: None (occurrence: None)
  Receive Date: 20041228
  Receipt Date: 20041216
  Transmission Date: 20050328
  Serious: Yes (Disabling)
  Sender: FDA-Public Use
  Company Number: AU-BRISTOL-MYERS SQUIBB COMPANY-12798450

PATIENT
  Age: 26 Year
  Sex: Male
  Weight: 110 kg

DRUGS (2)
  1. ABILIFY [Suspect]
     Indication: SCHIZOPHRENIA
     Dates: start: 20040920
  2. CIPRAMIL [Concomitant]
     Dosage: 20 MG 05-AUG-04 TO 20-SEP-04; THEN 40 MG 20-SEP-04
     Dates: start: 20040920

REACTIONS (1)
  - OBSESSIVE-COMPULSIVE DISORDER [None]
